FAERS Safety Report 11591296 (Version 4)
Quarter: 2021Q3

REPORT INFORMATION
  Report Type: Report from Study
  Country: CA (occurrence: CA)
  Receive Date: 20151004
  Receipt Date: 20210817
  Transmission Date: 20211014
  Serious: Yes (Hospitalization, Other)
  Sender: FDA-Public Use
  Company Number: PHHY2014CA005181

PATIENT
  Age: 28 Year
  Sex: Female

DRUGS (12)
  1. SANDOSTATIN LAR DEPOT [Suspect]
     Active Substance: OCTREOTIDE ACETATE
     Dosage: 30 MG, QMO
     Route: 030
     Dates: start: 20140604
  2. SANDOSTATIN LAR DEPOT [Suspect]
     Active Substance: OCTREOTIDE ACETATE
     Dosage: 40 MG, QMO (ONCE A MONTH)
     Route: 030
  3. ALDACTONE [Suspect]
     Active Substance: SPIRONOLACTONE
     Indication: PRODUCT USED FOR UNKNOWN INDICATION
     Dosage: UNK
     Route: 065
  4. BENTYLOL [Concomitant]
     Active Substance: DICYCLOMINE HYDROCHLORIDE
     Indication: PRODUCT USED FOR UNKNOWN INDICATION
     Dosage: UNK UNK, QID (PRN)
     Route: 048
  5. DICYCLOMINE [Concomitant]
     Active Substance: DICYCLOMINE HYDROCHLORIDE
     Indication: PRODUCT USED FOR UNKNOWN INDICATION
     Dosage: 10 MG, PRN
     Route: 065
  6. DEXILANT [Concomitant]
     Active Substance: DEXLANSOPRAZOLE
     Indication: PRODUCT USED FOR UNKNOWN INDICATION
     Dosage: UNK (DIE)
     Route: 048
     Dates: end: 20210416
  7. SANDOSTATIN LAR DEPOT [Suspect]
     Active Substance: OCTREOTIDE ACETATE
     Indication: COLITIS MICROSCOPIC
     Dosage: 10 MG, QMO (EVERY FOUR WEEKS)
     Route: 030
     Dates: start: 20131215
  8. QUESTRAN [Suspect]
     Active Substance: CHOLESTYRAMINE
     Indication: PRODUCT USED FOR UNKNOWN INDICATION
     Dosage: 2 PACKS A DAY
     Route: 065
  9. OLESTYR [Concomitant]
     Active Substance: CHOLESTYRAMINE
     Indication: BLOOD CHOLESTEROL
     Dosage: 1 DF, QD (1 SACHET A DAY FOR 2 DAYS)
     Route: 048
     Dates: start: 202001
  10. OLESTYR [Concomitant]
     Active Substance: CHOLESTYRAMINE
     Dosage: 1 DF, QD (3 SACHETS OF 4 MG 1 TIME PER DAY)
     Route: 048
     Dates: start: 202001
  11. ZANTAC [Concomitant]
     Active Substance: RANITIDINE HYDROCHLORIDE
     Indication: PRODUCT USED FOR UNKNOWN INDICATION
     Dosage: 0.5 DF, BID
     Route: 065
     Dates: start: 20210416
  12. IMODIUM [Concomitant]
     Active Substance: LOPERAMIDE HYDROCHLORIDE
     Indication: PRODUCT USED FOR UNKNOWN INDICATION
     Dosage: QID (PRN)
     Route: 048

REACTIONS (29)
  - Blood pressure diastolic increased [Unknown]
  - Blood pressure decreased [Unknown]
  - Cholelithiasis [Unknown]
  - Blood potassium increased [Unknown]
  - Pain in extremity [Unknown]
  - Blood uric acid increased [Unknown]
  - Hypotension [Unknown]
  - Urticaria [Unknown]
  - Limb discomfort [Unknown]
  - Gastroenteritis [Unknown]
  - Nausea [Unknown]
  - Pain [Not Recovered/Not Resolved]
  - Oedema [Not Recovered/Not Resolved]
  - Pyrexia [Recovered/Resolved]
  - Nephropathy [Unknown]
  - Hypocalcaemia [Unknown]
  - Peripheral swelling [Recovered/Resolved]
  - Fatigue [Unknown]
  - Blood magnesium decreased [Unknown]
  - Injection site pain [Recovered/Resolved]
  - Heart rate increased [Unknown]
  - Blood creatinine increased [Unknown]
  - Mobility decreased [Unknown]
  - Diarrhoea [Unknown]
  - Chills [Recovered/Resolved]
  - Gout [Unknown]
  - Dizziness [Unknown]
  - Abdominal pain [Unknown]
  - Product use in unapproved indication [Unknown]

NARRATIVE: CASE EVENT DATE: 20131215
